FAERS Safety Report 24292554 (Version 1)
Quarter: 2024Q3

REPORT INFORMATION
  Report Type: Spontaneous
  Country: US (occurrence: None)
  Receive Date: 20240905
  Receipt Date: 20240905
  Transmission Date: 20241016
  Serious: No
  Sender: Public
  Company Number: None

PATIENT
  Sex: Female

DRUGS (1)
  1. BUPRENORPHINE [Suspect]
     Active Substance: BUPRENORPHINE
     Indication: Pain

REACTIONS (5)
  - Pancreatitis acute [None]
  - Hypoaesthesia [None]
  - Symptom masked [None]
  - Product communication issue [None]
  - Therapeutic product effect incomplete [None]
